FAERS Safety Report 12475802 (Version 1)
Quarter: 2016Q2

REPORT INFORMATION
  Report Type: Spontaneous
  Country: IN (occurrence: IN)
  Receive Date: 20160617
  Receipt Date: 20160617
  Transmission Date: 20160815
  Serious: Yes (Death)
  Sender: FDA-Public Use
  Company Number: IN-ASTRAZENECA-2016SE65615

PATIENT
  Age: 58 Year
  Sex: Female

DRUGS (9)
  1. SALAMID [Concomitant]
     Dosage: 1.0G UNKNOWN
     Route: 042
  2. PESUEOPRESSIN [Concomitant]
     Route: 045
  3. PIPERACILLIN AND TAZOBACTAM [Concomitant]
     Active Substance: PIPERACILLIN SODIUM\TAZOBACTAM SODIUM
     Dosage: 4.5G UNKNOWN
     Route: 042
  4. AZTOR [Concomitant]
     Dosage: 80.0MG UNKNOWN
     Route: 048
  5. ASPIRIN. [Concomitant]
     Active Substance: ASPIRIN
     Dosage: 150.0MG UNKNOWN
     Route: 048
  6. BRILINTA [Suspect]
     Active Substance: TICAGRELOR
     Dosage: 90.0MG UNKNOWN
     Route: 048
  7. MANNITOL. [Concomitant]
     Active Substance: MANNITOL
     Dosage: 100.0MG UNKNOWN
     Route: 042
  8. PANTOP [Concomitant]
     Dosage: 40.0MG UNKNOWN
     Route: 048
  9. THYROXINE [Concomitant]
     Active Substance: LEVOTHYROXINE
     Dosage: 300.0MG UNKNOWN
     Route: 048

REACTIONS (1)
  - Haemorrhage intracranial [Fatal]
